FAERS Safety Report 14967729 (Version 2)
Quarter: 2018Q2

REPORT INFORMATION
  Report Type: Spontaneous
  Country: US (occurrence: US)
  Receive Date: 20180604
  Receipt Date: 20180611
  Transmission Date: 20180711
  Serious: No
  Sender: FDA-Public Use
  Company Number: US-PFIZER INC-2018220287

PATIENT
  Age: 69 Year
  Sex: Female
  Weight: 66.67 kg

DRUGS (11)
  1. MAGNESIUM [Concomitant]
     Active Substance: MAGNESIUM
     Dosage: UNK UNK, DAILY
  2. SIROLIMUS. [Suspect]
     Active Substance: SIROLIMUS
     Indication: LYMPHANGIOLEIOMYOMATOSIS
     Dosage: 2 MG, ONCE A DAY (DAILY EVERY MORNING)
     Route: 048
     Dates: start: 2017
  3. POTASSIUM [Concomitant]
     Active Substance: POTASSIUM
     Dosage: 99 MG, DAILY
  4. VITAMIN C [Concomitant]
     Active Substance: ASCORBIC ACID
     Indication: SPONDYLITIS
  5. NIACIN. [Concomitant]
     Active Substance: NIACIN
     Dosage: UNK UNK, DAILY
  6. FOLIC ACID. [Concomitant]
     Active Substance: FOLIC ACID
     Dosage: 800 MG, DAILY
  7. AMLODIPINE [Concomitant]
     Active Substance: AMLODIPINE BESYLATE
     Dosage: 5-10 CAPSULES TAKEN BY MOUTH ONCE DAILY
  8. VITAMIN E [Concomitant]
     Active Substance: .ALPHA.-TOCOPHEROL
     Dosage: UNK UNK, DAILY
  9. VITAMIN C [Concomitant]
     Active Substance: ASCORBIC ACID
     Indication: SCIATICA
  10. VITAMIN C [Concomitant]
     Active Substance: ASCORBIC ACID
     Indication: VITAMIN C DEFICIENCY
     Dosage: 1000 MG, DAILY
  11. VITAMIN B [Concomitant]
     Active Substance: VITAMIN B
     Dosage: UNK UNK, DAILY

REACTIONS (5)
  - Blood cholesterol increased [Recovering/Resolving]
  - Peripheral swelling [Not Recovered/Not Resolved]
  - Joint swelling [Not Recovered/Not Resolved]
  - Hypertension [Unknown]
  - Condition aggravated [Unknown]

NARRATIVE: CASE EVENT DATE: 201804
